FAERS Safety Report 4925030-2 (Version None)
Quarter: 2006Q1

REPORT INFORMATION
  Report Type: 
  Country: None (occurrence: None)
  Receive Date: 20060222
  Receipt Date: 20060209
  Transmission Date: 20060701
  Serious: Yes (Death)
  Sender: FDA-Public Use
  Company Number: MEDI-0004064

PATIENT
  Age: 5 Month
  Sex: Female
  Weight: 7 kg

DRUGS (3)
  1. SYNAGIS [Suspect]
     Indication: ANTIVIRAL PROPHYLAXIS
     Dosage: 1 IN 30 D, INTRAMUSCULAR
     Route: 030
  2. PREVACID [Concomitant]
  3. CALCIUM GLUBIONATE [Concomitant]

REACTIONS (4)
  - CARDIAC DISORDER [None]
  - COAGULOPATHY [None]
  - DISEASE PROGRESSION [None]
  - LUNG DISORDER [None]
